FAERS Safety Report 8490330-9 (Version None)
Quarter: 2012Q3

REPORT INFORMATION
  Report Type: 
  Country: None (occurrence: None)
  Receive Date: 20120705
  Receipt Date: 20120628
  Transmission Date: 20120928
  Serious: Yes (Other)
  Sender: FDA-Public Use
  Company Number: JP-PFIZER INC-2012141654

PATIENT
  Age: 75 Year
  Sex: Female

DRUGS (5)
  1. BAYCARON [Concomitant]
     Dosage: UNK
     Route: 048
     Dates: start: 20120507, end: 20120508
  2. TOCLASE [Suspect]
     Indication: COUGH
     Dosage: UNK
     Route: 048
     Dates: start: 20120507, end: 20120508
  3. CRESTOR [Concomitant]
     Dosage: UNK
     Route: 048
     Dates: start: 20120507, end: 20120508
  4. ZITHROMAX [Suspect]
     Indication: COUGH
     Dosage: UNK
     Route: 048
     Dates: start: 20120507, end: 20120508
  5. IBRUPROFEN [Suspect]
     Indication: COUGH
     Dosage: UNK
     Route: 048
     Dates: start: 20120507, end: 20120508

REACTIONS (1)
  - HAEMATOCHEZIA [None]
